FAERS Safety Report 12880943 (Version 1)
Quarter: 2016Q4

REPORT INFORMATION
  Report Type: Spontaneous
  Country: US (occurrence: US)
  Receive Date: 20161024
  Receipt Date: 20161024
  Transmission Date: 20170207
  Serious: Yes (Life-Threatening, Hospitalization, Disabling)
  Sender: FDA-Public Use
  Company Number: None

PATIENT
  Age: 64 Year
  Sex: Male
  Weight: 68.4 kg

DRUGS (6)
  1. DIALYSIS [Concomitant]
     Active Substance: UNSPECIFIED INGREDIENT
  2. VITAMIN C [Concomitant]
     Active Substance: ASCORBIC ACID
  3. CISPLATIN. [Suspect]
     Active Substance: CISPLATIN
     Indication: NEOPLASM MALIGNANT
     Dosage: ?          OTHER FREQUENCY:EVERY 3 WEEKS;?
     Route: 042
     Dates: start: 20150101, end: 20150501
  4. VITAMIN D [Concomitant]
     Active Substance: CHOLECALCIFEROL
  5. NORCO [Concomitant]
     Active Substance: ACETAMINOPHEN\HYDROCODONE BITARTRATE
  6. VIT B [Concomitant]
     Active Substance: VITAMIN B

REACTIONS (3)
  - Dialysis [None]
  - Renal impairment [None]
  - Poor venous access [None]

NARRATIVE: CASE EVENT DATE: 20150701
